FAERS Safety Report 19708513 (Version 6)
Quarter: 2021Q3

REPORT INFORMATION
  Report Type: Report from Study
  Country: GR (occurrence: GR)
  Receive Date: 20210817
  Receipt Date: 20210930
  Transmission Date: 20211014
  Serious: Yes (Hospitalization)
  Sender: FDA-Public Use
  Company Number: GR-SA-2021SA269720

PATIENT
  Age: 7 Year
  Sex: Male
  Weight: 38 kg

DRUGS (21)
  1. MITOXANTRONE [Suspect]
     Active Substance: MITOXANTRONE HYDROCHLORIDE
     Dosage: 10 MG/M2, DAYS 8 AND 9 OF INDUCTION PERIOD
     Route: 042
  2. DOXORUBICIN [Suspect]
     Active Substance: DOXORUBICIN
     Indication: B-CELL TYPE ACUTE LEUKAEMIA
     Dosage: 25 MG/M2 DAYS 10, 17,24, AND 31 OF INDUCTION PERIOD
     Route: 042
  3. ASPARAGINASE [Suspect]
     Active Substance: ASPARAGINASE
     Dosage: 1000 IU/M? DAYS 10 AND 24 DURING INDUCTION PERIOD, DAY 44 DURING CONSOLIDATION PERIOD
     Route: 030
  4. PARACETAMOL [Concomitant]
     Active Substance: ACETAMINOPHEN
     Indication: PROPHYLAXIS
     Dosage: 500 MG, 1X
     Route: 048
     Dates: start: 20210805, end: 20210805
  5. MONTELUKAST [Concomitant]
     Active Substance: MONTELUKAST SODIUM
     Indication: PROPHYLAXIS
     Dosage: 5 MG, 1X
     Route: 048
     Dates: start: 20210805, end: 20210805
  6. DEXAMETHASONE. [Suspect]
     Active Substance: DEXAMETHASONE
     Indication: B-CELL TYPE ACUTE LEUKAEMIA
     Dosage: 10 MG/M2, QW
     Route: 042
     Dates: start: 20210805, end: 20210805
  7. DEXAMETHASONE. [Suspect]
     Active Substance: DEXAMETHASONE
     Dosage: 10 MG/M2, QW
     Route: 065
     Dates: start: 20210607, end: 20210607
  8. ETOPOSIDE. [Suspect]
     Active Substance: ETOPOSIDE
     Indication: B-CELL TYPE ACUTE LEUKAEMIA
     Dosage: 100 MG/M2 ON DAYS 50 TO 54
     Route: 042
     Dates: start: 20210802, end: 20210802
  9. DOXORUBICIN [Suspect]
     Active Substance: DOXORUBICIN
     Dosage: 25 MG/M2 DAYS 10, 17,24, AND 31 OF INDUCTION PERIOD
     Route: 042
  10. VINCRISTINE SULFATE. [Suspect]
     Active Substance: VINCRISTINE SULFATE
     Indication: B-CELL TYPE ACUTE LEUKAEMIA
     Dosage: 1.5 MG/M2 ON DAYS 10, 17, 24, AND 31 DURING INDUCTION PERIOD; DAY 38 DURING CONSOLIDATION PERIOD.
     Route: 042
  11. ISATUXIMAB [Suspect]
     Active Substance: ISATUXIMAB
     Dosage: 20 MG/M2, QW
     Route: 042
     Dates: start: 20210610, end: 20210610
  12. ETOPOSIDE. [Suspect]
     Active Substance: ETOPOSIDE
     Dosage: 100 MG/M2 ON DAYS 50 TO 54
     Route: 042
     Dates: start: 20210729, end: 20210729
  13. CYCLOPHOSPHAMIDE. [Suspect]
     Active Substance: CYCLOPHOSPHAMIDE
     Indication: B-CELL TYPE ACUTE LEUKAEMIA
     Dosage: 440 MG/M2, ON DAYS 50 TO 54
     Route: 042
     Dates: start: 20210802, end: 20210802
  14. MITOXANTRONE [Suspect]
     Active Substance: MITOXANTRONE HYDROCHLORIDE
     Indication: B-CELL TYPE ACUTE LEUKAEMIA
     Dosage: 10 MG/M2, DAYS 8 AND 9 OF INDUCTION PERIOD
     Route: 042
  15. METHOTREXATE. [Suspect]
     Active Substance: METHOTREXATE
     Dosage: 1000 MG/M2 DAY 43 CONSOLIDATION PERIOD
     Route: 042
  16. CYCLOPHOSPHAMIDE. [Suspect]
     Active Substance: CYCLOPHOSPHAMIDE
     Dosage: 440 MG/M2, ON DAYS 50 TO 54
     Route: 042
     Dates: start: 20210729, end: 20210729
  17. ASPARAGINASE [Suspect]
     Active Substance: ASPARAGINASE
     Indication: B-CELL TYPE ACUTE LEUKAEMIA
     Dosage: 1000 IU/M? DAYS 10 AND 24 DURING INDUCTION PERIOD, DAY 44 DURING CONSOLIDATION PERIOD
     Route: 030
  18. ISATUXIMAB [Suspect]
     Active Substance: ISATUXIMAB
     Indication: B-CELL TYPE ACUTE LEUKAEMIA
     Dosage: 20 MG/M2, QW
     Route: 042
     Dates: start: 20210805, end: 20210805
  19. FENISTIL [Concomitant]
     Active Substance: DIMETHINDENE
     Indication: PROPHYLAXIS
     Dosage: 4 MG, 1X
     Route: 042
     Dates: start: 20210805, end: 20210805
  20. VINCRISTINE SULFATE. [Suspect]
     Active Substance: VINCRISTINE SULFATE
     Dosage: 1.5 MG/M2 ON DAYS 10, 17, 24, AND 31 DURING INDUCTION PERIOD; DAY 38 DURING CONSOLIDATION PERIOD.
     Route: 042
  21. METHOTREXATE. [Suspect]
     Active Substance: METHOTREXATE
     Indication: B-CELL TYPE ACUTE LEUKAEMIA
     Dosage: 1000 MG/M2 DAY 43 CONSOLIDATION PERIOD
     Route: 042

REACTIONS (2)
  - Pyrexia [Recovered/Resolved]
  - Pyrexia [Not Recovered/Not Resolved]

NARRATIVE: CASE EVENT DATE: 20210812
